FAERS Safety Report 7244488-X (Version None)
Quarter: 2011Q1

REPORT INFORMATION
  Report Type: 
  Country: None (occurrence: None)
  Receive Date: 20110125
  Receipt Date: 20110124
  Transmission Date: 20110831
  Serious: Yes (Hospitalization)
  Sender: FDA-Public Use
  Company Number: US-B.I. PHARMACEUTICALS,INC./RIDGEFIELD-2010-BP-15023BP

PATIENT
  Age: 89 Year
  Sex: Male
  Weight: 83.46 kg

DRUGS (16)
  1. MIRALAX [Concomitant]
     Dosage: 17 G
  2. PRADAXA [Suspect]
     Indication: ATRIAL FIBRILLATION
     Dosage: 300 MG
     Dates: start: 20101118, end: 20101122
  3. ADVICOR [Concomitant]
  4. ADULT ASPIRIN EC [Concomitant]
  5. VACCINE AGAINST INFLUENZA [Concomitant]
  6. ECK LAX/STOOL SOFTENER [Concomitant]
  7. DEPAKOTE ER [Concomitant]
     Dosage: 250 MG
     Route: 048
  8. ZESTORETIC [Concomitant]
  9. MIDRIN [Concomitant]
     Indication: HEADACHE
  10. NORVASC [Concomitant]
     Indication: HYPERTENSION
     Dosage: 5 MG
  11. CENTRUM SILVER [Concomitant]
  12. LORTAB [Concomitant]
     Indication: PAIN
  13. VACCINE AGAINST VARICELLA ZOSTER [Concomitant]
  14. VACCINE AGAINST BACTERIAL DISEASE NEC [Concomitant]
  15. ANUSOL HC [Concomitant]
     Route: 054
  16. CALTRATE 600 + D 600 [Concomitant]

REACTIONS (1)
  - RECTAL HAEMORRHAGE [None]
